FAERS Safety Report 22120995 (Version 1)
Quarter: 2023Q1

REPORT INFORMATION
  Report Type: Spontaneous
  Country: US (occurrence: None)
  Receive Date: 20230321
  Receipt Date: 20230321
  Transmission Date: 20230417
  Serious: Yes (Death)
  Sender: FDA-Public Use
  Company Number: None

PATIENT
  Age: 37 Year
  Sex: Female

DRUGS (1)
  1. IBRANCE [Suspect]
     Active Substance: PALBOCICLIB

REACTIONS (10)
  - Hepatomegaly [None]
  - Jaundice [None]
  - Cough [None]
  - Lung disorder [None]
  - Dyspnoea [None]
  - Anxiety [None]
  - Oxygen saturation decreased [None]
  - Blood electrolytes decreased [None]
  - Respiratory rate increased [None]
  - Cardiac arrest [None]

NARRATIVE: CASE EVENT DATE: 20230316
